FAERS Safety Report 16177096 (Version 2)
Quarter: 2019Q2

REPORT INFORMATION
  Report Type: Report from Study
  Country: None (occurrence: US)
  Receive Date: 20190410
  Receipt Date: 20190607
  Transmission Date: 20190711
  Serious: Yes (Hospitalization)
  Sender: FDA-Public Use
  Company Number: US-ABBVIE-19K-163-2736632-00

PATIENT
  Age: 79 Year
  Sex: Female
  Weight: 58.11 kg

DRUGS (3)
  1. HUMALOG [Concomitant]
     Active Substance: INSULIN LISPRO
     Indication: PRODUCT USED FOR UNKNOWN INDICATION
  2. LANTUS [Concomitant]
     Active Substance: INSULIN GLARGINE
     Indication: PRODUCT USED FOR UNKNOWN INDICATION
  3. HUMIRA [Suspect]
     Active Substance: ADALIMUMAB
     Indication: RHEUMATOID ARTHRITIS
     Route: 058

REACTIONS (3)
  - Diabetes mellitus [Recovering/Resolving]
  - Hypoglycaemia [Recovered/Resolved]
  - Aspiration [Recovered/Resolved]

NARRATIVE: CASE EVENT DATE: 2019
